FAERS Safety Report 23043667 (Version 2)
Quarter: 2024Q3

REPORT INFORMATION
  Report Type: Report from Study
  Country: JP (occurrence: JP)
  Receive Date: 20231009
  Receipt Date: 20240818
  Transmission Date: 20241017
  Serious: Yes (Other)
  Sender: JOHNSON AND JOHNSON
  Company Number: JP-JNJFOC-20231013518

PATIENT
  Age: 41 Year
  Sex: Male

DRUGS (4)
  1. COBICISTAT\DARUNAVIR\EMTRICITABINE\TENOFOVIR ALAFENAMIDE [Suspect]
     Active Substance: COBICISTAT\DARUNAVIR\EMTRICITABINE\TENOFOVIR ALAFENAMIDE
     Indication: HIV infection
     Route: 048
     Dates: start: 20191203
  2. PITAVASTATIN CALCIUM [Concomitant]
     Active Substance: PITAVASTATIN CALCIUM
     Indication: Hypercholesterolaemia
     Dosage: DOSE UNKNOWN
     Route: 048
     Dates: start: 20230208
  3. AMOXICILLIN [Concomitant]
     Active Substance: AMOXICILLIN
     Indication: Syphilis
     Dosage: DOSE UNKNOWN
     Route: 048
     Dates: start: 20221205, end: 20230103
  4. PROBENECID [Concomitant]
     Active Substance: PROBENECID
     Indication: Syphilis
     Dosage: DOSE UNKNOWN
     Route: 048
     Dates: start: 20221205, end: 20230103

REACTIONS (2)
  - Syphilis [Recovered/Resolved]
  - Monkeypox [Recovered/Resolved]

NARRATIVE: CASE EVENT DATE: 20221130
